FAERS Safety Report 22064698 (Version 1)
Quarter: 2023Q1

REPORT INFORMATION
  Report Type: Report from Study
  Country: US (occurrence: US)
  Receive Date: 20230306
  Receipt Date: 20230306
  Transmission Date: 20230418
  Serious: Yes (Other)
  Sender: FDA-Public Use
  Company Number: US-JNJFOC-20210904390

PATIENT
  Sex: Female

DRUGS (3)
  1. JANSSEN COVID-19 VACCINE [Suspect]
     Active Substance: AD26.COV2.S
     Indication: Immunisation
     Route: 065
  2. STELARA [Suspect]
     Active Substance: USTEKINUMAB
     Indication: Crohn^s disease
     Dosage: LATEST ADMINISTRATION DATE:20-AUG-2021
     Route: 065
     Dates: start: 20210430
  3. STELARA [Suspect]
     Active Substance: USTEKINUMAB
     Route: 065
     Dates: start: 20210820

REACTIONS (6)
  - Antiphospholipid syndrome [Unknown]
  - Angiopathy [Unknown]
  - Cardiac disorder [Unknown]
  - Wound infection [Unknown]
  - Limb discomfort [Unknown]
  - Headache [Unknown]
